FAERS Safety Report 7472754-1 (Version None)
Quarter: 2011Q2

REPORT INFORMATION
  Report Type: 
  Country: None (occurrence: None)
  Receive Date: 20110511
  Receipt Date: 20110506
  Transmission Date: 20111010
  Serious: Yes (Other)
  Sender: FDA-Public Use
  Company Number: FR-SANOFI-AVENTIS-2011SA028673

PATIENT
  Age: 80 Year
  Sex: Male

DRUGS (7)
  1. MULTAQ [Suspect]
     Indication: ATRIAL FIBRILLATION
     Route: 048
     Dates: start: 20101101, end: 20110301
  2. FUROSEMIDE [Concomitant]
  3. LEVOTHYROXINE SODIUM [Concomitant]
  4. INEGY [Concomitant]
  5. CANDESARTAN CILEXETIL [Concomitant]
  6. CORTANCYL [Concomitant]
  7. ASPIRIN [Concomitant]

REACTIONS (3)
  - LEUKOPENIA [None]
  - THROMBOCYTOPENIA [None]
  - LYMPHOPENIA [None]
